FAERS Safety Report 5117212-4 (Version None)
Quarter: 2006Q3

REPORT INFORMATION
  Report Type: 
  Country: None (occurrence: None)
  Receive Date: 20060929
  Receipt Date: 20060919
  Transmission Date: 20061208
  Serious: Yes (Hospitalization)
  Sender: FDA-Public Use
  Company Number: US-SOLVAY-00206003078

PATIENT
  Age: 48 Year
  Sex: Male
  Weight: 107.5 kg

DRUGS (3)
  1. GLUCOTROL [Concomitant]
     Indication: DIABETES MELLITUS
     Dosage: DAILY DOSE:  UNKNOWN
     Route: 048
     Dates: start: 20051201
  2. ANDROGEL [Suspect]
     Indication: BLOOD TESTOSTERONE DECREASED
     Dosage: DAILY DOSE: 2.5 GRAM(S)
     Route: 062
     Dates: start: 20051201, end: 20060127
  3. VYTORIN [Concomitant]
     Indication: BLOOD CHOLESTEROL INCREASED
     Dosage: DAILY DOSE:  UNKNOWN
     Route: 048
     Dates: start: 20051201

REACTIONS (1)
  - ACUTE MYOCARDIAL INFARCTION [None]
